FAERS Safety Report 17814752 (Version 1)
Quarter: 2020Q2

REPORT INFORMATION
  Report Type: Spontaneous
  Country: JP (occurrence: JP)
  Receive Date: 20200522
  Receipt Date: 20200522
  Transmission Date: 20200714
  Serious: Yes (Other)
  Sender: FDA-Public Use
  Company Number: JP-ROCHE-2605053

PATIENT
  Age: 7 Decade
  Sex: Female

DRUGS (3)
  1. DOCETAXEL. [Suspect]
     Active Substance: DOCETAXEL
     Indication: BREAST CANCER
     Dosage: DOSAGE IS UNCERTAIN.
     Route: 041
     Dates: start: 20200214, end: 20200515
  2. HERCEPTIN [Suspect]
     Active Substance: TRASTUZUMAB
     Indication: BREAST CANCER
     Route: 041
     Dates: start: 20200214, end: 20200515
  3. PERJETA [Suspect]
     Active Substance: PERTUZUMAB
     Indication: BREAST CANCER
     Route: 041
     Dates: start: 20200214, end: 20200515

REACTIONS (1)
  - Interstitial lung disease [Recovered/Resolved]
